FAERS Safety Report 7266933-6 (Version None)
Quarter: 2011Q1

REPORT INFORMATION
  Report Type: 
  Country: None (occurrence: None)
  Receive Date: 20110201
  Receipt Date: 20110103
  Transmission Date: 20110831
  Serious: No
  Sender: FDA-Public Use
  Company Number: US-BAYER-2011-002676

PATIENT
  Sex: Male
  Weight: 77.098 kg

DRUGS (1)
  1. ULTRAVIST INJECTION PHARMACY BULK PACKAGE [Suspect]
     Indication: COMPUTERISED TOMOGRAM THORAX
     Dosage: 80 ML, ONCE
     Route: 042
     Dates: start: 20101216, end: 20101216

REACTIONS (2)
  - PRURITUS [None]
  - URTICARIA [None]
